FAERS Safety Report 8354500 (Version 2)
Quarter: 2013Q3

REPORT INFORMATION
  Report Type: Report from Study
  Country: FR (occurrence: FR)
  Receive Date: 20120125
  Receipt Date: 20130726
  Transmission Date: 20140515
  Serious: Yes (Death, Other)
  Sender: FDA-Public Use
  Company Number: FR-ROCHE-1031239

PATIENT
  Sex: 0

DRUGS (4)
  1. MYCOPHENOLATE MOFETIL [Suspect]
     Indication: RENAL TRANSPLANT
     Route: 065
  2. TACROLIMUS [Suspect]
     Indication: RENAL TRANSPLANT
     Route: 065
  3. BLINDED ALEFACEPT [Suspect]
     Indication: RENAL TRANSPLANT
     Route: 042
  4. BLINDED ALEFACEPT [Suspect]
     Route: 058

REACTIONS (9)
  - Septic shock [Fatal]
  - Pulmonary oedema [Fatal]
  - Cytomegalovirus infection [Unknown]
  - BK virus infection [Unknown]
  - Renal impairment [Unknown]
  - Urinary tract infection [Unknown]
  - Cytomegalovirus viraemia [Unknown]
  - Complications of transplanted kidney [Unknown]
  - Histology abnormal [Unknown]
